FAERS Safety Report 14190094 (Version 2)
Quarter: 2018Q1

REPORT INFORMATION
  Report Type: Spontaneous
  Country: FR (occurrence: FR)
  Receive Date: 20171115
  Receipt Date: 20180207
  Transmission Date: 20180508
  Serious: Yes (Other)
  Sender: FDA-Public Use
  Company Number: FR-MERCK KGAA-2034131

PATIENT
  Age: 73 Year
  Sex: Female
  Weight: 50 kg

DRUGS (1)
  1. NOVOTHYROX [Suspect]
     Active Substance: LEVOTHYROXINE SODIUM
     Indication: AUTOIMMUNE THYROIDITIS
     Dates: start: 20170901, end: 20170914

REACTIONS (7)
  - Hypertension [Recovered/Resolved]
  - Sleep disorder [Recovered/Resolved]
  - Malaise [Recovered/Resolved]
  - Blood thyroid stimulating hormone normal [Unknown]
  - Dyspepsia [Recovered/Resolved]
  - Headache [Recovered/Resolved]
  - Arrhythmia [Recovered/Resolved]

NARRATIVE: CASE EVENT DATE: 2017
